FAERS Safety Report 4462423-4 (Version None)
Quarter: 2004Q3

REPORT INFORMATION
  Report Type: 
  Country: None (occurrence: None)
  Receive Date: 20040929
  Receipt Date: 20040909
  Transmission Date: 20050211
  Serious: Yes (Hospitalization)
  Sender: FDA-Public Use
  Company Number: PHRM2004FR02760

PATIENT
  Age: 78 Year
  Sex: Female
  Weight: 76 kg

DRUGS (5)
  1. COTAREG [Suspect]
     Indication: HYPERTENSION
     Dosage: 1 DF/DAY
     Route: 048
     Dates: start: 20040301, end: 20040807
  2. PRAVASTATIN [Concomitant]
     Dosage: 20 MG, QD
     Route: 048
     Dates: start: 19900101
  3. SECTRAL [Concomitant]
     Dosage: 200 MG, BID
     Route: 048
     Dates: start: 19900101
  4. CORVASAL [Concomitant]
     Dosage: 4 MG, BID
     Route: 048
     Dates: start: 19900101
  5. ASPIRIN [Concomitant]
     Dosage: 160 MG, QD
     Route: 048
     Dates: start: 19900101

REACTIONS (16)
  - APRAXIA [None]
  - ASTHENIA [None]
  - BLOOD OSMOLARITY DECREASED [None]
  - BLOOD PARATHYROID HORMONE ABNORMAL [None]
  - BLOOD PHOSPHORUS DECREASED [None]
  - DYSPNOEA [None]
  - ENZYME ABNORMALITY [None]
  - HYPERPARATHYROIDISM [None]
  - HYPOCHLORAEMIA [None]
  - HYPOKALAEMIA [None]
  - HYPONATRAEMIA [None]
  - MALAISE [None]
  - MALNUTRITION [None]
  - PULMONARY OEDEMA [None]
  - RALES [None]
  - URINE OSMOLARITY DECREASED [None]
